FAERS Safety Report 12098885 (Version 1)
Quarter: 2016Q1

REPORT INFORMATION
  Report Type: Spontaneous
  Country: US (occurrence: None)
  Receive Date: 20160219
  Receipt Date: 20160219
  Transmission Date: 20160526
  Serious: Yes (Life-Threatening, Hospitalization, Disabling)
  Sender: FDA-Public Use
  Company Number: None

PATIENT
  Age: 64 Year
  Sex: Female
  Weight: 63.5 kg

DRUGS (9)
  1. IRON HYDROCODONE [Concomitant]
  2. KRILL OIL [Concomitant]
     Active Substance: DIETARY SUPPLEMENT
  3. PROBIOTICS [Concomitant]
     Active Substance: PROBIOTICS NOS
  4. VERAPAMIL [Concomitant]
     Active Substance: VERAPAMIL HYDROCHLORIDE
  5. LANOXIN [Concomitant]
     Active Substance: DIGOXIN
  6. LISINAPRIL [Concomitant]
  7. COQ10 [Concomitant]
     Active Substance: UBIDECARENONE
  8. ATORVASTATIN [Suspect]
     Active Substance: ATORVASTATIN
     Indication: BLOOD CHOLESTEROL INCREASED
     Dosage: 1 X DAY ONCE DAILY
     Route: 048
  9. PLAVIX [Concomitant]
     Active Substance: CLOPIDOGREL BISULFATE

REACTIONS (7)
  - Nausea [None]
  - Vomiting [None]
  - Hepatic enzyme increased [None]
  - Pain [None]
  - Diarrhoea [None]
  - Blood pressure decreased [None]
  - Asthenia [None]
